FAERS Safety Report 12422787 (Version 1)
Quarter: 2016Q2

REPORT INFORMATION
  Report Type: Spontaneous
  Country: US (occurrence: US)
  Receive Date: 20160601
  Receipt Date: 20160601
  Transmission Date: 20160815
  Serious: No
  Sender: FDA-Public Use
  Company Number: US-ASTRAZENECA-2014SE23593

PATIENT
  Age: 68 Year
  Sex: Male
  Weight: 88 kg

DRUGS (14)
  1. BYETTA [Suspect]
     Active Substance: EXENATIDE
     Indication: TYPE 2 DIABETES MELLITUS
     Dosage: 5 UG TWO TIMES A DAY
     Route: 058
     Dates: start: 201202, end: 20160410
  2. INSULIN [Concomitant]
     Active Substance: INSULIN NOS
     Dosage: 1DF=45 UNITS
     Route: 058
  3. LINAGLIPTIN/METFORMIN HYDROCHLORIDE [Concomitant]
     Indication: TYPE 2 DIABETES MELLITUS
     Route: 048
     Dates: end: 20120529
  4. ATORVASTATIN [Concomitant]
     Active Substance: ATORVASTATIN
  5. BYDUREON [Suspect]
     Active Substance: EXENATIDE
     Indication: TYPE 2 DIABETES MELLITUS
     Dosage: 2 MG ONCE A WEEK
     Route: 058
     Dates: start: 20120530
  6. LANTUS [Concomitant]
     Active Substance: INSULIN GLARGINE
  7. BYETTA [Suspect]
     Active Substance: EXENATIDE
     Indication: TYPE 2 DIABETES MELLITUS
     Dosage: 5 UG DAILY
     Route: 058
     Dates: start: 201402
  8. BYETTA [Suspect]
     Active Substance: EXENATIDE
     Indication: TYPE 2 DIABETES MELLITUS
     Dosage: 5 UG TWO TIMES A DAY
     Route: 058
     Dates: start: 2012, end: 20160410
  9. ACTOS [Concomitant]
     Active Substance: PIOGLITAZONE HYDROCHLORIDE
     Indication: TYPE 2 DIABETES MELLITUS
     Route: 048
     Dates: end: 20120529
  10. FOLBEE [Concomitant]
     Active Substance: CYANOCOBALAMIN\FOLIC ACID\PYRIDOXINE HYDROCHLORIDE
  11. VITAMIN D [Concomitant]
     Active Substance: CHOLECALCIFEROL
  12. TYLENOL SUBSTITUTE [Concomitant]
  13. GLIPIZIDE. [Concomitant]
     Active Substance: GLIPIZIDE
     Indication: TYPE 2 DIABETES MELLITUS
     Dosage: 5 MG TWO TIMES A DAY
     Route: 048
  14. BENICAR [Concomitant]
     Active Substance: OLMESARTAN MEDOXOMIL

REACTIONS (7)
  - Fatigue [Not Recovered/Not Resolved]
  - Vitamin D deficiency [Unknown]
  - Intentional product misuse [Unknown]
  - Product packaging quantity issue [Unknown]
  - Hypersomnia [Not Recovered/Not Resolved]
  - Blood glucose increased [Recovering/Resolving]
  - Vision blurred [Unknown]

NARRATIVE: CASE EVENT DATE: 20120530
